FAERS Safety Report 9432569 (Version 1)
Quarter: 2013Q3

REPORT INFORMATION
  Report Type: Spontaneous
  Country: US (occurrence: US)
  Receive Date: 20130731
  Receipt Date: 20130731
  Transmission Date: 20140515
  Serious: No
  Sender: FDA-Public Use
  Company Number: US-GLAXOSMITHKLINE-A1013784A

PATIENT
  Age: 63 Year
  Sex: Female

DRUGS (1)
  1. HYDROCHLOROTHIAZIDE\TRIAMTERENE [Suspect]
     Indication: PRODUCT USED FOR UNKNOWN INDICATION
     Route: 048
     Dates: start: 2007

REACTIONS (5)
  - Drug hypersensitivity [Unknown]
  - Dizziness [Unknown]
  - Throat tightness [Unknown]
  - Urticaria [Unknown]
  - Swelling [Unknown]
